FAERS Safety Report 9184671 (Version 1)
Quarter: 2013Q1

REPORT INFORMATION
  Report Type: Spontaneous
  Country: US (occurrence: US)
  Receive Date: 20130324
  Receipt Date: 20130324
  Transmission Date: 20140127
  Serious: Yes (Other)
  Sender: FDA-Public Use
  Company Number: US-SANOFI-AVENTIS-2013SA028573

PATIENT
  Age: 65 Year
  Sex: Male

DRUGS (4)
  1. LANTUS SOLOSTAR [Suspect]
     Indication: TYPE 2 DIABETES MELLITUS
     Dosage: PRODUCT STARTED 4-5 YEARS AGO DOSE:20 UNIT(S)
     Route: 058
  2. SOLOSTAR [Suspect]
     Indication: TYPE 2 DIABETES MELLITUS
  3. NOVOLIN [Suspect]
     Route: 065
  4. NOVOLOG [Suspect]
     Route: 065

REACTIONS (3)
  - Diabetic retinal oedema [Unknown]
  - Retinal haemorrhage [Unknown]
  - Visual impairment [Unknown]
